FAERS Safety Report 5317260-5 (Version None)
Quarter: 2007Q2

REPORT INFORMATION
  Report Type: 
  Country: None (occurrence: None)
  Receive Date: 20070504
  Receipt Date: 20070426
  Transmission Date: 20071010
  Serious: Yes (Other)
  Sender: FDA-Public Use
  Company Number: US-GENENTECH-226180

PATIENT
  Sex: Male
  Weight: 70.9 kg

DRUGS (6)
  1. SOMATROPIN [Suspect]
     Indication: GROWTH HORMONE DEFICIENCY
     Dosage: 3.3 MG, 7/WEEK
     Route: 058
     Dates: start: 20020731
  2. CORTEF [Concomitant]
     Indication: DRUG USE FOR UNKNOWN INDICATION
     Dosage: 10 MG, TID
     Route: 048
  3. CORTEF [Concomitant]
     Dosage: 5 MG, TID
     Route: 048
  4. FLUBENDAZOLE [Concomitant]
     Indication: DRUG USE FOR UNKNOWN INDICATION
     Dosage: 0.1 MG, QD
     Route: 048
     Dates: start: 20021206
  5. SYNTHROID [Concomitant]
     Indication: DRUG USE FOR UNKNOWN INDICATION
     Dosage: 0.125 UNK, QD
     Route: 048
     Dates: start: 20050727
  6. DEPO-TESTOSTERONE [Concomitant]
     Indication: DRUG USE FOR UNKNOWN INDICATION
     Dosage: 200 MG, Q2W
     Route: 030
     Dates: start: 20030819

REACTIONS (1)
  - RENAL CYST [None]
